FAERS Safety Report 16208960 (Version 1)
Quarter: 2019Q2

REPORT INFORMATION
  Report Type: Spontaneous
  Country: FR (occurrence: FR)
  Receive Date: 20190417
  Receipt Date: 20190417
  Transmission Date: 20190711
  Serious: Yes (Hospitalization, Other)
  Sender: FDA-Public Use
  Company Number: FR-PFIZER INC-2019157024

PATIENT
  Age: 35 Year
  Sex: Male

DRUGS (9)
  1. OLANZAPINE. [Suspect]
     Active Substance: OLANZAPINE
     Dosage: 20 MG, SINGLE
     Route: 048
     Dates: start: 20171114, end: 20171114
  2. TERALITHE [Suspect]
     Active Substance: LITHIUM CARBONATE
     Dosage: 400 MG, SINGLE
     Route: 048
     Dates: start: 20171114, end: 20171114
  3. TRIHEXYPHENIDYL [Suspect]
     Active Substance: TRIHEXYPHENIDYL
     Dosage: UNK
     Route: 048
     Dates: start: 20171114, end: 20171114
  4. HALDOL DECANOAS [Concomitant]
     Active Substance: HALOPERIDOL DECANOATE
     Dosage: 50 MG/ML, WEEKLY
  5. NICORETTE [Concomitant]
     Active Substance: NICOTINE
     Dosage: 16 MG, DAILY
  6. ALPRAZOLAM. [Suspect]
     Active Substance: ALPRAZOLAM
     Dosage: 45 MG, SINGLE (3 BOXES OF 30 CP OF 0.5MG) (0-1-1)
     Route: 048
     Dates: start: 20171114, end: 20171114
  7. LOXAPAC [LOXAPINE] [Suspect]
     Active Substance: LOXAPINE
     Dosage: 6000 MG, SINGLE (4 BOXES OF 30 CP OF 50 MG) (1-1-1)
     Route: 048
     Dates: start: 20171114, end: 20171114
  8. FORLAX [Concomitant]
     Active Substance: POLYETHYLENE GLYCOL 4000
     Dosage: 20 G, DAILY (10G 2-0-0),
  9. DOLIPRANE [Concomitant]
     Active Substance: ACETAMINOPHEN
     Dosage: 1 G, 3X/DAY

REACTIONS (6)
  - Miosis [Recovered/Resolved]
  - Toxicity to various agents [Recovered/Resolved]
  - Suicide attempt [Recovered/Resolved]
  - Intentional overdose [Recovered/Resolved]
  - Somnolence [Recovered/Resolved]
  - Hypothermia [Recovered/Resolved]

NARRATIVE: CASE EVENT DATE: 20171114
